FAERS Safety Report 10393224 (Version 2)
Quarter: 2014Q3

REPORT INFORMATION
  Report Type: Spontaneous
  Country: PL (occurrence: None)
  Receive Date: 20140815
  Receipt Date: 20140828
  Transmission Date: 20150326
  Serious: Yes (Other)
  Sender: FDA-Public Use
  Company Number: AUR-APL-2014-08712

PATIENT
  Age: 27 Year
  Sex: Male

DRUGS (1)
  1. OLANZAPINE. [Suspect]
     Active Substance: OLANZAPINE
     Indication: DEPRESSIVE SYMPTOM

REACTIONS (10)
  - Hypertriglyceridaemia [None]
  - Asthenia [None]
  - Weight decreased [None]
  - Disturbance in attention [None]
  - Abdominal pain [None]
  - Blood cholesterol increased [None]
  - Sedation [None]
  - Transaminases increased [None]
  - Nausea [None]
  - Dyslipidaemia [None]
